FAERS Safety Report 4300292-3 (Version None)
Quarter: 2004Q1

REPORT INFORMATION
  Report Type: 
  Country: None (occurrence: None)
  Receive Date: 20040218
  Receipt Date: 20040210
  Transmission Date: 20041129
  Serious: Yes (Other)
  Sender: FDA-Public Use
  Company Number: 200412376BWH

PATIENT
  Age: 50 Year
  Sex: Female
  Weight: 65 kg

DRUGS (11)
  1. NIMOTOP [Suspect]
     Indication: SUBARACHNOID HAEMORRHAGE
     Dosage: 360 MG TOTAL DAILY, ENDOTRACH
     Route: 007
     Dates: start: 20040121, end: 20040130
  2. NIMOTOP [Suspect]
     Indication: SUBARACHNOID HAEMORRHAGE
     Dosage: 360 MG TOTAL DAILY, ENDOTRACH
     Route: 007
     Dates: start: 20040131, end: 20040206
  3. DOPAMINE HCL [Concomitant]
  4. CLINDAMYCIN [Concomitant]
  5. GENTAMICIN [Concomitant]
  6. ALBUTEROL [Concomitant]
  7. PULIMICORT [Concomitant]
  8. COLACE [Concomitant]
  9. LOMOTIL [Concomitant]
  10. FAMOTIDINE [Concomitant]
  11. IBUPROFEN [Concomitant]

REACTIONS (2)
  - CEREBRAL PERFUSION PRESSURE DECREASED [None]
  - HYPOTENSION [None]
